FAERS Safety Report 5007333-9 (Version None)
Quarter: 2006Q2

REPORT INFORMATION
  Report Type: 
  Country: None (occurrence: None)
  Receive Date: 20060518
  Receipt Date: 20060518
  Transmission Date: 20061013
  Serious: Yes (Other)
  Sender: FDA-Public Use
  Company Number: None

PATIENT
  Age: 31 Year
  Sex: Female
  Weight: 81.6475 kg

DRUGS (2)
  1. OXYCONTIN [Suspect]
     Dosage: 80 MG
  2. OXYCONTIN [Suspect]
     Dosage: 40 MG

REACTIONS (2)
  - PRURITUS [None]
  - VOMITING [None]
